FAERS Safety Report 10067133 (Version 1)
Quarter: 2014Q2

REPORT INFORMATION
  Report Type: Spontaneous
  Country: US (occurrence: US)
  Receive Date: 20140409
  Receipt Date: 20140409
  Transmission Date: 20141212
  Serious: No
  Sender: FDA-Public Use
  Company Number: US-SHIRE-US201401183

PATIENT
  Age: 19 Year
  Sex: Female

DRUGS (4)
  1. VYVANSE [Suspect]
     Indication: PRODUCT USED FOR UNKNOWN INDICATION
     Dosage: 20 MG, UNKNOWN
     Route: 048
  2. VYVANSE [Suspect]
     Dosage: 30 MG, UNKNOWN
     Route: 048
  3. VYVANSE [Suspect]
     Dosage: 50 MG, UNKNOWN
     Route: 048
  4. VYVANSE [Suspect]
     Dosage: 30 MG, UNKNOWN
     Route: 048
     Dates: start: 2013

REACTIONS (7)
  - Panic attack [Recovered/Resolved]
  - Therapeutic response changed [Not Recovered/Not Resolved]
  - Orthostatic hypertension [Not Recovered/Not Resolved]
  - Obsessive thoughts [Recovered/Resolved]
  - Dry mouth [Not Recovered/Not Resolved]
  - Decreased appetite [Not Recovered/Not Resolved]
  - Drug effect decreased [Not Recovered/Not Resolved]
